FAERS Safety Report 18179856 (Version 5)
Quarter: 2025Q3

REPORT INFORMATION
  Report Type: Spontaneous
  Country: US (occurrence: US)
  Receive Date: 20200821
  Receipt Date: 20250923
  Transmission Date: 20251021
  Serious: Yes (Hospitalization)
  Sender: PFIZER
  Company Number: US-PFIZER INC-2020321216

PATIENT
  Sex: Female

DRUGS (2)
  1. PHENYTOIN [Interacting]
     Active Substance: PHENYTOIN
     Indication: Seizure prophylaxis
  2. CAPECITABINE [Interacting]
     Active Substance: CAPECITABINE
     Indication: Breast cancer stage III

REACTIONS (4)
  - Drug interaction [Unknown]
  - Toxicity to various agents [Recovering/Resolving]
  - Confusional state [Recovering/Resolving]
  - Dyskinesia [Recovering/Resolving]
